FAERS Safety Report 25457293 (Version 1)
Quarter: 2025Q2

REPORT INFORMATION
  Report Type: Spontaneous
  Country: CA (occurrence: CA)
  Receive Date: 20250619
  Receipt Date: 20250619
  Transmission Date: 20250716
  Serious: Yes (Other)
  Sender: EISAI
  Company Number: CA-Eisai-EC-2025-191340

PATIENT
  Age: 61 Year
  Sex: Male

DRUGS (1)
  1. DAYVIGO [Suspect]
     Active Substance: LEMBOREXANT
     Indication: Product used for unknown indication

REACTIONS (3)
  - Somnolence [Unknown]
  - Fall [Unknown]
  - Sedation [Unknown]
